FAERS Safety Report 16351549 (Version 2)
Quarter: 2019Q2

REPORT INFORMATION
  Report Type: Spontaneous
  Country: US (occurrence: US)
  Receive Date: 20190524
  Receipt Date: 20190611
  Transmission Date: 20190711
  Serious: Yes (Other)
  Sender: FDA-Public Use
  Company Number: US-COOPERSURGICAL, INC.-US-2019CPS001521

PATIENT
  Age: 52 Year
  Sex: Female
  Weight: 53.61 kg

DRUGS (2)
  1. PARAGARD T 380A [Suspect]
     Active Substance: COPPER
     Indication: CONTRACEPTION
     Dosage: UNK
     Route: 015
     Dates: start: 2012, end: 20190513
  2. LOSARTAN. [Concomitant]
     Active Substance: LOSARTAN
     Indication: BLOOD PRESSURE ABNORMAL
     Dosage: UNK
     Route: 065

REACTIONS (3)
  - Device breakage [Recovered/Resolved]
  - Complication of device removal [Recovered/Resolved]
  - Postmenopausal haemorrhage [Not Recovered/Not Resolved]

NARRATIVE: CASE EVENT DATE: 201901
